FAERS Safety Report 7730205-3 (Version None)
Quarter: 2011Q3

REPORT INFORMATION
  Report Type: 
  Country: None (occurrence: None)
  Receive Date: 20110906
  Receipt Date: 20110831
  Transmission Date: 20111222
  Serious: Yes (Other)
  Sender: FDA-Public Use
  Company Number: PHEH2011US02005

PATIENT
  Sex: Female

DRUGS (1)
  1. RITALIN LA [Suspect]
     Dosage: UNK UKN, UNK

REACTIONS (1)
  - DELUSION [None]
